FAERS Safety Report 10231533 (Version 2)
Quarter: 2014Q2

REPORT INFORMATION
  Report Type: Spontaneous
  Country: DE (occurrence: DE)
  Receive Date: 20140611
  Receipt Date: 20140617
  Transmission Date: 20141212
  Serious: Yes (Other)
  Sender: FDA-Public Use
  Company Number: CHPA2014DE007822

PATIENT
  Sex: Male

DRUGS (2)
  1. SCOPODERM TTS [Suspect]
     Indication: SALIVARY HYPERSECRETION
     Dosage: UNK, 1 PATCH EVERY 3 DAYS (0.5MG)
     Route: 062
     Dates: start: 2008
  2. SCOPODERM TTS [Suspect]
     Indication: OFF LABEL USE

REACTIONS (3)
  - Laryngeal oedema [Unknown]
  - Application site pruritus [Unknown]
  - Drug administered at inappropriate site [Unknown]
